FAERS Safety Report 19734631 (Version 5)
Quarter: 2022Q2

REPORT INFORMATION
  Report Type: Report from Study
  Country: CA (occurrence: CA)
  Receive Date: 20210824
  Receipt Date: 20220502
  Transmission Date: 20220721
  Serious: Yes (Other)
  Sender: FDA-Public Use
  Company Number: CA-UCBSA-2021038994

PATIENT
  Sex: Female

DRUGS (6)
  1. CERTOLIZUMAB PEGOL [Suspect]
     Active Substance: CERTOLIZUMAB PEGOL
     Indication: Rheumatoid arthritis
     Dosage: 400 MILLIGRAM, EV 2 WEEKS(QOW)
     Route: 058
     Dates: start: 20210715
  2. CERTOLIZUMAB PEGOL [Suspect]
     Active Substance: CERTOLIZUMAB PEGOL
     Dosage: 200 MILLIGRAM, EV 2 WEEKS(QOW)
     Route: 058
     Dates: start: 2021, end: 2021
  3. CERTOLIZUMAB PEGOL [Suspect]
     Active Substance: CERTOLIZUMAB PEGOL
     Dosage: 200 MILLIGRAM, EV 2 WEEKS(QOW)
     Route: 058
     Dates: start: 202110, end: 2022
  4. ADVAIR HFA [Suspect]
     Active Substance: FLUTICASONE PROPIONATE\SALMETEROL XINAFOATE
     Indication: Product used for unknown indication
  5. DULOXETINE [Concomitant]
     Active Substance: DULOXETINE
     Indication: Fibromyalgia
  6. PREDNISONE [Concomitant]
     Active Substance: PREDNISONE
     Indication: Product used for unknown indication

REACTIONS (11)
  - Pancreatitis [Recovering/Resolving]
  - Rheumatoid arthritis [Unknown]
  - Pruritus [Recovered/Resolved]
  - Dyspnoea exertional [Recovering/Resolving]
  - Cough [Recovering/Resolving]
  - Asthma [Unknown]
  - Fibromyalgia [Recovering/Resolving]
  - Sinusitis [Unknown]
  - Rash [Not Recovered/Not Resolved]
  - Infection [Unknown]
  - SARS-CoV-2 test negative [Unknown]

NARRATIVE: CASE EVENT DATE: 20210101
